FAERS Safety Report 5224680-6 (Version None)
Quarter: 2007Q1

REPORT INFORMATION
  Report Type: 
  Country: None (occurrence: None)
  Receive Date: 20070129
  Receipt Date: 20070129
  Transmission Date: 20070707
  Serious: Yes (Other)
  Sender: FDA-Public Use
  Company Number: None

PATIENT
  Sex: Male
  Weight: 85.2762 kg

DRUGS (1)
  1. AZITHROMYCIN [Suspect]
     Indication: SINUSITIS
     Dosage: 250MG/5 DOSES ONCE DAILY
     Dates: start: 20070118, end: 20070122

REACTIONS (2)
  - DRUG DOSE OMISSION [None]
  - HAEMATOCHEZIA [None]
